FAERS Safety Report 13962399 (Version 1)
Quarter: 2017Q3

REPORT INFORMATION
  Report Type: Spontaneous
  Country: GB (occurrence: GB)
  Receive Date: 20170913
  Receipt Date: 20170913
  Transmission Date: 20171128
  Serious: Yes (Other)
  Sender: FDA-Public Use
  Company Number: GB-MYLANLABS-2017M1056093

PATIENT
  Age: 65 Year
  Sex: Female
  Weight: 76.8 kg

DRUGS (4)
  1. LOSARTAN POTASSIUM. [Concomitant]
     Active Substance: LOSARTAN POTASSIUM
  2. CAPECITABINE. [Suspect]
     Active Substance: CAPECITABINE
     Indication: CHOLANGIOCARCINOMA
     Dosage: 1-14 OF 21-DAY CYCLE.
     Route: 048
     Dates: start: 20170526, end: 20170728
  3. LANSOPRAZOLE. [Concomitant]
     Active Substance: LANSOPRAZOLE
  4. GALFER [Concomitant]
     Active Substance: IRON

REACTIONS (4)
  - Muscle tightness [Unknown]
  - Scleroderma [Not Recovered/Not Resolved]
  - Skin discolouration [Unknown]
  - Skin oedema [Unknown]

NARRATIVE: CASE EVENT DATE: 20170706
